FAERS Safety Report 9678963 (Version 1)
Quarter: 2013Q4

REPORT INFORMATION
  Report Type: Spontaneous
  Country: US (occurrence: US)
  Receive Date: 20131108
  Receipt Date: 20131108
  Transmission Date: 20140711
  Serious: Yes (Death, Hospitalization, Other)
  Sender: FDA-Public Use
  Company Number: US-ASTRAZENECA-2013SE81820

PATIENT
  Age: 61 Year
  Sex: Female

DRUGS (8)
  1. SEROQUEL [Suspect]
     Route: 048
  2. SEROQUEL [Suspect]
     Route: 048
  3. METFORMIN [Concomitant]
     Indication: HYPERGLYCAEMIA
  4. DEPAKOTE [Concomitant]
  5. DIURETIC [Concomitant]
  6. MAYBE POTASSIUM [Concomitant]
  7. VALIUM [Concomitant]
  8. SOMA [Concomitant]

REACTIONS (11)
  - Neuroleptic malignant syndrome [Fatal]
  - Coma [Fatal]
  - Pyrexia [Fatal]
  - Hypertension [Unknown]
  - Rectal prolapse [Unknown]
  - Blood glucose abnormal [Unknown]
  - Thirst [Unknown]
  - Breast mass [Unknown]
  - Hyperglycaemia [Unknown]
  - Blood cholesterol increased [Unknown]
  - Circumstance or information capable of leading to medication error [Unknown]
